FAERS Safety Report 4477138-6 (Version None)
Quarter: 2004Q4

REPORT INFORMATION
  Report Type: 
  Country: None (occurrence: None)
  Receive Date: 20041013
  Receipt Date: 20041006
  Transmission Date: 20050328
  Serious: No
  Sender: FDA-Public Use
  Company Number: A044-002-005228

PATIENT
  Age: 84 Year
  Sex: Male

DRUGS (1)
  1. ARICEPT [Suspect]
     Indication: DEMENTIA ALZHEIMER'S TYPE
     Dosage: 5 MG, 1 IN 1 D; ORAL
     Route: 048
     Dates: start: 20000814, end: 20001120

REACTIONS (4)
  - ADAMS-STOKES SYNDROME [None]
  - BRADYCARDIA [None]
  - RESPIRATORY DEPRESSION [None]
  - SYNCOPE [None]
